FAERS Safety Report 13432461 (Version 3)
Quarter: 2017Q2

REPORT INFORMATION
  Report Type: Spontaneous
  Country: US (occurrence: US)
  Receive Date: 20170412
  Receipt Date: 20170627
  Transmission Date: 20170830
  Serious: Yes (Life-Threatening, Hospitalization, Disabling, Other)
  Sender: FDA-Public Use
  Company Number: US-JNJFOC-20170334041

PATIENT
  Age: 73 Year
  Sex: Female
  Weight: 73 kg

DRUGS (14)
  1. XARELTO [Suspect]
     Active Substance: RIVAROXABAN
     Indication: DEEP VEIN THROMBOSIS
     Route: 048
     Dates: start: 201410, end: 201610
  2. XARELTO [Suspect]
     Active Substance: RIVAROXABAN
     Indication: PULMONARY EMBOLISM
     Route: 048
     Dates: start: 201410, end: 201610
  3. VITAMIN D3 [Concomitant]
     Active Substance: CHOLECALCIFEROL
     Route: 065
  4. DILT CD [Concomitant]
     Indication: ATRIAL FIBRILLATION
     Dosage: DOSE: 240 (UNITS UNSPECIFIED)
     Route: 065
  5. MYCOPHENOLATE [Concomitant]
     Active Substance: MYCOPHENOLIC ACID
     Dosage: 500 (UNSPECIFIED UNITS)
     Route: 065
  6. NEXIUM [Concomitant]
     Active Substance: ESOMEPRAZOLE MAGNESIUM
     Dosage: DOSE: 40 (UNITS UNSPECIFIED)
     Route: 065
  7. XARELTO [Suspect]
     Active Substance: RIVAROXABAN
     Indication: ATRIAL FIBRILLATION
     Route: 048
     Dates: start: 201410, end: 201610
  8. COQ 10 [Concomitant]
     Active Substance: UBIDECARENONE
     Route: 065
  9. FEXOFENADINE [Concomitant]
     Active Substance: FEXOFENADINE\FEXOFENADINE HYDROCHLORIDE
     Indication: HYPERSENSITIVITY
     Dosage: DOSE: 180 (UNITS UNSPECIFIED)
     Route: 065
  10. VITAMIN B [Concomitant]
     Active Substance: VITAMIN B
     Route: 065
  11. PROLIA [Concomitant]
     Active Substance: DENOSUMAB
     Route: 065
  12. PRAVASTATIN. [Concomitant]
     Active Substance: PRAVASTATIN
     Dosage: DOSE: 10 (UNITS UNSPECIFIED)
     Route: 065
  13. VITAMIN C [Concomitant]
     Active Substance: ASCORBIC ACID
     Route: 065
  14. METOPROLOL SUCCINATE. [Concomitant]
     Active Substance: METOPROLOL SUCCINATE
     Dosage: 25 (UNSPECIFIED UNITS)
     Route: 065

REACTIONS (3)
  - Subarachnoid haemorrhage [Recovering/Resolving]
  - Aneurysm [Recovering/Resolving]
  - Asthenia [Recovering/Resolving]

NARRATIVE: CASE EVENT DATE: 20161016
